FAERS Safety Report 5992449-0 (Version None)
Quarter: 2008Q4

REPORT INFORMATION
  Report Type: 
  Country: None (occurrence: None)
  Receive Date: 20081211
  Receipt Date: 20080518
  Transmission Date: 20090506
  Serious: No
  Sender: FDA-Public Use
  Company Number: US-AMGEN-KDL280422

PATIENT
  Sex: Male

DRUGS (2)
  1. ENBREL [Suspect]
     Indication: RHEUMATOID ARTHRITIS
     Route: 058
     Dates: start: 20080409
  2. METHOTREXATE [Concomitant]
     Dates: start: 20080315

REACTIONS (6)
  - BLISTER INFECTED [None]
  - OROPHARYNGEAL PAIN [None]
  - RASH [None]
  - RHINORRHOEA [None]
  - SINUS CONGESTION [None]
  - TIC [None]
